FAERS Safety Report 15563537 (Version 1)
Quarter: 2018Q4

REPORT INFORMATION
  Report Type: Spontaneous
  Country: US (occurrence: US)
  Receive Date: 20181029
  Receipt Date: 20181029
  Transmission Date: 20190205
  Serious: No
  Sender: FDA-Public Use
  Company Number: US-BAUSCH-BL-2018-027539

PATIENT
  Age: 65 Year
  Sex: Female
  Weight: 49.03 kg

DRUGS (5)
  1. OLANZAPINE. [Concomitant]
     Active Substance: OLANZAPINE
     Indication: PRODUCT USED FOR UNKNOWN INDICATION
  2. BESIVANCE [Suspect]
     Active Substance: BESIFLOXACIN
     Indication: CATARACT
     Route: 047
     Dates: start: 20181004
  3. BESIVANCE [Suspect]
     Active Substance: BESIFLOXACIN
     Indication: OFF LABEL USE
     Dosage: UNINTENTIONALLY INSTILLED TWO DROPS IN THE EYE INSTEAD OF ONE DROP
     Route: 047
     Dates: start: 20181009
  4. DUREZOL [Concomitant]
     Active Substance: DIFLUPREDNATE
     Indication: PRODUCT USED FOR UNKNOWN INDICATION
  5. BROMFENAC [Concomitant]
     Active Substance: BROMFENAC SODIUM
     Indication: PRODUCT USED FOR UNKNOWN INDICATION

REACTIONS (4)
  - Incorrect dose administered [Unknown]
  - Off label use [Not Recovered/Not Resolved]
  - Dizziness [Recovered/Resolved]
  - Product dropper issue [Unknown]

NARRATIVE: CASE EVENT DATE: 20181004
